APPROVED DRUG PRODUCT: IVERMECTIN
Active Ingredient: IVERMECTIN
Strength: 3MG
Dosage Form/Route: TABLET;ORAL
Application: A215922 | Product #001 | TE Code: AB
Applicant: RUBICON RESEARCH LTD
Approved: Jan 22, 2025 | RLD: No | RS: No | Type: RX